FAERS Safety Report 7148796-2 (Version None)
Quarter: 2010Q4

REPORT INFORMATION
  Report Type: 
  Country: None (occurrence: None)
  Receive Date: 20101209
  Receipt Date: 20101126
  Transmission Date: 20110411
  Serious: Yes (Hospitalization)
  Sender: FDA-Public Use
  Company Number: PHHY2010DE82336

PATIENT
  Age: 40 Year
  Sex: Male
  Weight: 85 kg

DRUGS (27)
  1. MYFORTIC [Suspect]
     Indication: RENAL TRANSPLANT
     Dosage: 360 MG
     Route: 048
     Dates: start: 20060101
  2. PREDNISOLONE [Suspect]
     Indication: RENAL TRANSPLANT
     Dosage: 5 MG
     Route: 048
     Dates: start: 20050601
  3. PROGRAF [Suspect]
     Indication: RENAL TRANSPLANT
     Dosage: 2 MG
     Route: 048
     Dates: start: 20050601
  4. LONOLOX [Concomitant]
     Indication: RENAL HYPERTENSION
     Dosage: 2.5 MG
     Route: 048
     Dates: start: 20070101
  5. BISOPROLOL [Concomitant]
     Indication: RENAL HYPERTENSION
     Dosage: 5 MG
     Route: 048
     Dates: start: 20070101
  6. DOXY-PUREN [Concomitant]
     Indication: RENAL HYPERTENSION
     Dosage: 4 MG
     Route: 048
     Dates: start: 20070101
  7. MOXONIDINE [Concomitant]
     Indication: RENAL HYPERTENSION
     Dosage: 0.2 MG
     Route: 048
     Dates: start: 20070101
  8. CALCIMAGON-D3 [Concomitant]
     Indication: HYPERPARATHYROIDISM SECONDARY
     Dosage: 1250 MG
     Route: 048
     Dates: start: 20070101
  9. CALCIUM VERLA D [Concomitant]
     Indication: HYPERPARATHYROIDISM SECONDARY
     Dosage: UNK
     Route: 048
     Dates: start: 20070101
  10. CALCIUM VERLA D [Concomitant]
     Dosage: UNK
     Dates: start: 20070101
  11. CALCIUM VERLA D [Concomitant]
     Dosage: 600 MG
     Route: 048
     Dates: start: 20070101
  12. NITRENDIPINE [Concomitant]
     Indication: RENAL HYPERTENSION
     Dosage: UNK
     Route: 048
     Dates: start: 20070101
  13. NITRENDIPINE [Concomitant]
     Dosage: UNK
     Dates: start: 20070101
  14. NITRENDIPINE [Concomitant]
     Dosage: 20 MG
     Dates: start: 20070101
  15. EZETIMIBE/SIMVASTATIN [Concomitant]
     Indication: HYPERTRIGLYCERIDAEMIA
     Dosage: UNK
     Route: 048
     Dates: start: 20080101
  16. TOREM [Concomitant]
     Indication: RENAL HYPERTENSION
     Dosage: UNK
     Route: 048
     Dates: start: 20070101
  17. TOREM [Concomitant]
     Dosage: UNK
     Dates: start: 20070101
  18. TOREM [Concomitant]
     Dosage: 10 MG
     Dates: start: 20070101
  19. BICANORM [Concomitant]
     Indication: RENAL IMPAIRMENT
     Dosage: UNK
     Route: 048
     Dates: start: 20050101
  20. BICANORM [Concomitant]
     Dosage: UNK
     Dates: start: 20050101
  21. BICANORM [Concomitant]
     Dosage: 1 GM
     Route: 048
     Dates: start: 20050101
  22. OMEPRAZOLE [Concomitant]
     Indication: REFLUX OESOPHAGITIS
     Dosage: UNK
     Route: 048
  23. OMEPRAZOLE [Concomitant]
     Dosage: UNK
  24. OMEPRAZOLE [Concomitant]
     Dosage: 40 MG
  25. ALLOPURINOL [Concomitant]
     Indication: RENAL IMPAIRMENT
     Dosage: UNK
     Route: 048
     Dates: start: 20050101
  26. ALLOPURINOL [Concomitant]
     Dosage: UNK
     Dates: start: 20050101
  27. ALLOPURINOL [Concomitant]
     Dosage: 150 MG
     Dates: start: 20050101

REACTIONS (8)
  - ARTHRALGIA [None]
  - ASTHENIA [None]
  - COUGH [None]
  - HEADACHE [None]
  - INFECTION [None]
  - NAUSEA [None]
  - PYREXIA [None]
  - RASH [None]
